FAERS Safety Report 5023163-6 (Version None)
Quarter: 2006Q2

REPORT INFORMATION
  Report Type: 
  Country: None (occurrence: None)
  Receive Date: 20060612
  Receipt Date: 20060601
  Transmission Date: 20061013
  Serious: Yes (Hospitalization)
  Sender: FDA-Public Use
  Company Number: FR-JNJFOC-20050106776

PATIENT
  Age: 89 Year
  Sex: Female

DRUGS (5)
  1. REMINYL [Suspect]
     Route: 048
  2. REMINYL [Suspect]
     Indication: DEMENTIA ALZHEIMER'S TYPE
     Route: 048
  3. MELILOT [Concomitant]
     Route: 065
  4. ASPIRIN [Concomitant]
     Route: 065
  5. LEVOTHYROX [Concomitant]
     Route: 065

REACTIONS (2)
  - RASH MACULAR [None]
  - TOXIC SKIN ERUPTION [None]
